FAERS Safety Report 5928964-5 (Version None)
Quarter: 2008Q4

REPORT INFORMATION
  Report Type: 
  Country: None (occurrence: None)
  Receive Date: 20081024
  Receipt Date: 20081013
  Transmission Date: 20090506
  Serious: Yes (Other)
  Sender: FDA-Public Use
  Company Number: JP-WYE-H06461208

PATIENT

DRUGS (1)
  1. AMIODARONE HCL [Suspect]
     Dosage: UNKNOWN
     Route: 065

REACTIONS (2)
  - GLOMERULONEPHRITIS MEMBRANOUS [None]
  - PULMONARY MASS [None]
